FAERS Safety Report 6665731-1 (Version None)
Quarter: 2010Q1

REPORT INFORMATION
  Report Type: 
  Country: None (occurrence: None)
  Receive Date: 20100325
  Receipt Date: 20091230
  Transmission Date: 20100710
  Serious: No
  Sender: FDA-Public Use
  Company Number: 2009-00921

PATIENT
  Age: 53 Year
  Sex: Male
  Weight: 70.3075 kg

DRUGS (2)
  1. COLD REMEDY RAPID MELTS WITH VITAMIN C AND ECHINACEA [Suspect]
     Dosage: QD - 1 DAY/1 DOSE
     Dates: start: 20091230, end: 20091230
  2. PROTONIX [Concomitant]

REACTIONS (2)
  - AGEUSIA [None]
  - ANOSMIA [None]
